FAERS Safety Report 6634466-3 (Version None)
Quarter: 2010Q1

REPORT INFORMATION
  Report Type: 
  Country: None (occurrence: None)
  Receive Date: 20100315
  Receipt Date: 20100309
  Transmission Date: 20100710
  Serious: Yes (Life-Threatening)
  Sender: FDA-Public Use
  Company Number: EG-ROCHE-689664

PATIENT
  Age: 60 Year
  Sex: Female
  Weight: 101 kg

DRUGS (5)
  1. TRASTUZUMAB [Suspect]
     Indication: BREAST CANCER
     Dosage: ROUTE: INFUSION
     Route: 050
     Dates: start: 20091006, end: 20091208
  2. DOCETAXEL [Concomitant]
     Indication: BREAST CANCER
     Route: 042
     Dates: start: 20090915, end: 20091027
  3. EPIRUBICIN [Concomitant]
     Indication: BREAST CANCER
     Route: 042
     Dates: start: 20091123, end: 20091123
  4. 5-FU [Concomitant]
     Indication: BREAST CANCER
     Route: 042
     Dates: start: 20091123, end: 20091123
  5. CYCLOPHOSPHAMIDE [Concomitant]
     Indication: BREAST CANCER
     Dosage: DRUG NAME: CYCLOPHOSPH
     Route: 042
     Dates: start: 20091123, end: 20091123

REACTIONS (1)
  - RENAL FAILURE ACUTE [None]
